FAERS Safety Report 13591344 (Version 7)
Quarter: 2018Q3

REPORT INFORMATION
  Report Type: Spontaneous
  Country: US (occurrence: US)
  Receive Date: 20170529
  Receipt Date: 20180918
  Transmission Date: 20181010
  Serious: Yes (Other)
  Sender: FDA-Public Use
  Company Number: US-PFIZER INC-2017232166

PATIENT
  Age: 78 Year
  Sex: Male
  Weight: 68 kg

DRUGS (16)
  1. VIAGRA [Suspect]
     Active Substance: SILDENAFIL CITRATE
     Dosage: UNK
     Route: 048
     Dates: start: 20170614
  2. SILDENAFIL CITRATE. [Suspect]
     Active Substance: SILDENAFIL CITRATE
     Dosage: UNK
     Dates: start: 2015, end: 2016
  3. TADALAFIL [Suspect]
     Active Substance: TADALAFIL
     Indication: SEXUAL DYSFUNCTION
     Dosage: 22 MG, AS NEEDED, (ONCE DAILY AS NEEDED ON AN EMPTY STOMACH)
     Route: 048
     Dates: start: 2015
  4. TADALAFIL [Suspect]
     Active Substance: TADALAFIL
     Dosage: 22 MG, 6 TIMES A MONTH
     Dates: start: 201610, end: 201701
  5. TADALAFIL [Suspect]
     Active Substance: TADALAFIL
     Dosage: 3 PILLS OF 22 MG, UNK
     Dates: start: 201507
  6. VIAGRA [Suspect]
     Active Substance: SILDENAFIL CITRATE
     Dosage: 100 MG, 6 TIMES A MONTH; TAKE ONE TABLET BEFORE SEX/ PRN INTERCOURSE
     Route: 048
     Dates: start: 201401, end: 201405
  7. SILDENAFIL CITRATE. [Suspect]
     Active Substance: SILDENAFIL CITRATE
     Indication: SEXUAL DYSFUNCTION
     Dosage: 110 MG, UNK (3 PILLS)
     Route: 048
     Dates: start: 201407
  8. TADALAFIL [Suspect]
     Active Substance: TADALAFIL
     Dosage: 5 DF, UNK
  9. VIAGRA [Suspect]
     Active Substance: SILDENAFIL CITRATE
     Dosage: 100 MG, AS NEEDED (1 TABLET)
     Route: 048
     Dates: start: 20130522
  10. VIAGRA [Suspect]
     Active Substance: SILDENAFIL CITRATE
     Dosage: 100 MG, AS NEEDED (1 TABLET)
     Route: 048
     Dates: start: 20140707
  11. TADALAFIL [Suspect]
     Active Substance: TADALAFIL
     Dosage: 22 MG, AS NEEDED (ONCE DAILY AS NEEDED ON AN EMPTY STOMACH)
     Dates: start: 2015
  12. LISINOPRIL. [Concomitant]
     Active Substance: LISINOPRIL
     Indication: BLOOD PRESSURE MEASUREMENT
     Dosage: 5 MG, UNK
     Dates: start: 20150330
  13. VIAGRA [Suspect]
     Active Substance: SILDENAFIL CITRATE
     Indication: ERECTILE DYSFUNCTION
     Dosage: 100 MG, AS NEEDED (1 TABLET)
     Route: 048
     Dates: start: 199501
  14. VIAGRA [Suspect]
     Active Substance: SILDENAFIL CITRATE
     Dosage: 100 MG, 6 TIMES A MONTH; TAKE ONE TABLET BEFORE SEX
     Route: 048
     Dates: start: 199810, end: 201312
  15. TADALAFIL [Suspect]
     Active Substance: TADALAFIL
     Dosage: 8 DF, UNK [TOOK EIGHT OF THE TADALAFIL]
  16. LEVOTHYROXINE. [Concomitant]
     Active Substance: LEVOTHYROXINE
     Indication: HYPOTHYROIDISM
     Dosage: 125 MG, 1X/DAY
     Route: 048
     Dates: start: 1995

REACTIONS (8)
  - Drug ineffective [Not Recovered/Not Resolved]
  - Ocular vascular disorder [Unknown]
  - Visual impairment [Unknown]
  - Drug prescribing error [Unknown]
  - Eye disorder [Recovered/Resolved]
  - Visual impairment [Recovered/Resolved]
  - Blindness transient [Recovered/Resolved]
  - Vision blurred [Unknown]

NARRATIVE: CASE EVENT DATE: 2014
